FAERS Safety Report 18434345 (Version 3)
Quarter: 2021Q2

REPORT INFORMATION
  Report Type: Report from Study
  Country: CR (occurrence: CR)
  Receive Date: 20201028
  Receipt Date: 20210531
  Transmission Date: 20210717
  Serious: Yes (Life-Threatening, Other)
  Sender: FDA-Public Use
  Company Number: CR-SA-2020SA297855

PATIENT
  Age: 45 Year
  Sex: Female

DRUGS (2)
  1. ALGLUCOSIDASE ALFA [Suspect]
     Active Substance: ALGLUCOSIDASE ALFA
     Indication: GLYCOGEN STORAGE DISEASE TYPE II
     Dosage: 26 U INJECTABLE SOLUTION, QOW
     Route: 042
     Dates: start: 20180523
  2. COVID?19 VACCINE NOS. [Suspect]
     Active Substance: COVID-19 VACCINE NOS
     Indication: COVID-19 IMMUNISATION
     Dosage: UNK
     Dates: start: 20210524, end: 20210524

REACTIONS (7)
  - Pyrexia [Recovering/Resolving]
  - Fatigue [Recovering/Resolving]
  - Skin haemorrhage [Unknown]
  - Biopsy skin [Unknown]
  - Skin cancer [Not Recovered/Not Resolved]
  - Pain [Unknown]
  - Pain in extremity [Recovering/Resolving]

NARRATIVE: CASE EVENT DATE: 20201020
